FAERS Safety Report 24401803 (Version 2)
Quarter: 2024Q4

REPORT INFORMATION
  Report Type: Report from Study
  Country: GB (occurrence: GB)
  Receive Date: 20241007
  Receipt Date: 20241111
  Transmission Date: 20250115
  Serious: No
  Sender: JOHNSON AND JOHNSON
  Company Number: GB-JNJFOC-20240928143

PATIENT
  Age: 68 Year
  Sex: Male

DRUGS (4)
  1. TREMFYA [Suspect]
     Active Substance: GUSELKUMAB
     Indication: Psoriasis
     Route: 065
     Dates: start: 20240910
  2. METHOTREXATE [Concomitant]
     Active Substance: METHOTREXATE
  3. BETAMETHASONE DIPROPIONATE\CALCIPOTRIENE MONOHYDRATE [Concomitant]
     Active Substance: BETAMETHASONE DIPROPIONATE\CALCIPOTRIENE MONOHYDRATE
  4. EUMOVATE [Concomitant]
     Active Substance: CLOBETASONE BUTYRATE

REACTIONS (2)
  - Device defective [Unknown]
  - Product dose omission issue [Unknown]
